FAERS Safety Report 5869109-X (Version None)
Quarter: 2008Q3

REPORT INFORMATION
  Report Type: 
  Country: None (occurrence: None)
  Receive Date: 20080903
  Receipt Date: 20080826
  Transmission Date: 20090109
  Serious: Yes (Hospitalization)
  Sender: FDA-Public Use
  Company Number: FR-WYE-G02061208

PATIENT
  Age: 53 Year
  Sex: Female

DRUGS (15)
  1. RAPAMUNE [Suspect]
     Indication: PROPHYLAXIS AGAINST TRANSPLANT REJECTION
     Dosage: 3 MG TOTAL DAILY
     Route: 048
     Dates: start: 19990101, end: 20080204
  2. RAPAMUNE [Suspect]
     Dosage: 2 MG TOTAL DAILY
     Route: 048
     Dates: start: 20080205, end: 20080221
  3. RAPAMUNE [Suspect]
     Route: 048
     Dates: start: 20080222, end: 20080306
  4. KENZEN [Concomitant]
     Route: 048
  5. ASPEGIC 325 [Concomitant]
     Dosage: 100 MG TOTAL DAILY
     Route: 048
  6. TAHOR [Concomitant]
     Route: 048
  7. NEORECORMON [Concomitant]
  8. ISOPTIN [Concomitant]
     Route: 048
  9. INIPOMP [Concomitant]
     Route: 048
  10. AIROMIR [Concomitant]
  11. UN-ALFA [Concomitant]
  12. QVAR 40 [Concomitant]
     Dosage: UNKNOWN; ON REQUEST
  13. CELLCEPT [Concomitant]
     Route: 048
     Dates: start: 19990101, end: 20080313
  14. CELLCEPT [Concomitant]
     Dosage: 500 MG STRENGTH; FREQUENCY UNSPECIFIED
     Route: 048
     Dates: start: 20080314
  15. GAVISCON [Concomitant]
     Route: 048

REACTIONS (8)
  - ALVEOLITIS [None]
  - ASPERGILLOSIS [None]
  - ASTHMA [None]
  - CONDITION AGGRAVATED [None]
  - DRUG LEVEL ABOVE THERAPEUTIC [None]
  - INFLUENZA [None]
  - LUNG DISORDER [None]
  - PULMONARY ALVEOLAR HAEMORRHAGE [None]
